FAERS Safety Report 4439048-X (Version None)
Quarter: 2004Q3

REPORT INFORMATION
  Report Type: 
  Country: None (occurrence: None)
  Receive Date: 20040901
  Receipt Date: 20030506
  Transmission Date: 20050211
  Serious: Yes (Death)
  Sender: FDA-Public Use
  Company Number: US-GLAXOSMITHKLINE-A0407528A

PATIENT
  Age: 81 Year
  Sex: Male

DRUGS (11)
  1. PAXIL [Suspect]
     Indication: DEPRESSION
     Dosage: 10MG VARIABLE DOSE
     Route: 048
     Dates: start: 20010401
  2. GLUCOTROL [Concomitant]
     Dosage: 10MG TWICE PER DAY
  3. ASPIRIN [Concomitant]
     Indication: CARDIOVASCULAR DISORDER
  4. GLUCOPHAGE [Concomitant]
     Dosage: 500MG IN THE MORNING
  5. AMBIEN [Concomitant]
     Dosage: 10MG AT NIGHT
     Route: 048
  6. MULTIVITAMIN [Concomitant]
  7. NITROGLYCERIN [Concomitant]
     Indication: CHEST PAIN
  8. DARVOCET [Concomitant]
     Indication: PAIN
  9. COLACE [Concomitant]
     Dosage: 100MG AS REQUIRED
  10. BENADRYL [Concomitant]
     Dosage: 25MG AS REQUIRED
  11. PREVACID [Concomitant]
     Route: 048

REACTIONS (3)
  - ADVERSE EVENT [None]
  - COMPLETED SUICIDE [None]
  - SUICIDAL IDEATION [None]
